FAERS Safety Report 9608921 (Version 1)
Quarter: 2013Q4

REPORT INFORMATION
  Report Type: Report from Study
  Country: BR (occurrence: BR)
  Receive Date: 20131009
  Receipt Date: 20131009
  Transmission Date: 20140711
  Serious: Yes (Other)
  Sender: FDA-Public Use
  Company Number: PHHY2013BR111562

PATIENT
  Sex: Male

DRUGS (4)
  1. TRILEPTAL [Suspect]
     Indication: PETIT MAL EPILEPSY
     Dosage: 600 MG, IN THE MORNING AND IN THE AFTERNOON
     Dates: start: 2005
  2. TRILEPTAL [Suspect]
     Indication: PARTIAL SEIZURES
  3. TRILEPTAL [Suspect]
     Indication: CEREBRAL ISCHAEMIA
  4. TRILEPTAL [Suspect]
     Indication: MEMORY IMPAIRMENT

REACTIONS (8)
  - Cerebrovascular accident [Recovered/Resolved]
  - Cerebral ischaemia [Recovered/Resolved]
  - General physical condition abnormal [Recovered/Resolved]
  - Malaise [Recovered/Resolved]
  - Gastritis [Recovered/Resolved]
  - Cough [Recovered/Resolved]
  - Dry throat [Recovered/Resolved]
  - Abdominal pain upper [Recovered/Resolved]
